FAERS Safety Report 4874894-X (Version None)
Quarter: 2006Q1

REPORT INFORMATION
  Report Type: 
  Country: None (occurrence: None)
  Receive Date: 20060104
  Receipt Date: 20051219
  Transmission Date: 20060701
  Serious: Yes (Death)
  Sender: FDA-Public Use
  Company Number: 2043

PATIENT
  Age: 44 Year
  Sex: Female

DRUGS (2)
  1. AVINZA [Suspect]
     Indication: PAIN
     Dosage: 60 MG DAILY PO
     Route: 048
     Dates: start: 20051001, end: 20051015
  2. MORPHINE SULFATE [Concomitant]

REACTIONS (3)
  - GASTROENTERITIS [None]
  - INFLUENZA [None]
  - PYREXIA [None]
